FAERS Safety Report 10965684 (Version 1)
Quarter: 2015Q1

REPORT INFORMATION
  Report Type: Spontaneous
  Country: US (occurrence: US)
  Receive Date: 20150330
  Receipt Date: 20150330
  Transmission Date: 20150721
  Serious: No
  Sender: FDA-Public Use
  Company Number: US-ASTRAZENECA-2015SE27390

PATIENT
  Sex: Female

DRUGS (6)
  1. VITALAPRAM [Concomitant]
     Route: 048
  2. SIMVASTATIN. [Concomitant]
     Active Substance: SIMVASTATIN
     Route: 048
  3. ONGLYZA [Suspect]
     Active Substance: SAXAGLIPTIN HYDROCHLORIDE
     Indication: TYPE 2 DIABETES MELLITUS
     Route: 048
  4. METFORMIN [Concomitant]
     Active Substance: METFORMIN HYDROCHLORIDE
     Indication: TYPE 2 DIABETES MELLITUS
     Route: 048
  5. PREVACID [Concomitant]
     Active Substance: LANSOPRAZOLE
     Route: 048
  6. BYETTA [Suspect]
     Active Substance: EXENATIDE
     Indication: TYPE 2 DIABETES MELLITUS
     Dosage: 250 MCG / 2.4 ML PEN, 10 UG TWO TIMES A DAY
     Route: 058

REACTIONS (3)
  - Drug dose omission [Unknown]
  - Injection site haemorrhage [Unknown]
  - Blood glucose increased [Unknown]
